FAERS Safety Report 19180313 (Version 2)
Quarter: 2021Q4

REPORT INFORMATION
  Report Type: Spontaneous
  Country: US (occurrence: US)
  Receive Date: 20210426
  Receipt Date: 20211125
  Transmission Date: 20220303
  Serious: No
  Sender: FDA-Public Use
  Company Number: US-PFIZER INC-2021359636

PATIENT
  Age: 42 Year
  Sex: Female

DRUGS (5)
  1. IBRANCE [Suspect]
     Active Substance: PALBOCICLIB
     Indication: Breast cancer metastatic
     Dosage: 125 MG, CYCLIC: DAILY FOR 21 DAYS
     Route: 048
  2. IBRANCE [Suspect]
     Active Substance: PALBOCICLIB
     Dosage: 125 MG, CYCLIC (21 DAYS ON, THEN 7 DAYS OFF)
     Route: 048
  3. TAMOXIFEN CITRATE [Concomitant]
     Active Substance: TAMOXIFEN CITRATE
  4. ALPRAZOLAM [Concomitant]
     Active Substance: ALPRAZOLAM
  5. PROMETHAZINE [Concomitant]
     Active Substance: PROMETHAZINE HYDROCHLORIDE

REACTIONS (3)
  - Haemoglobin decreased [Unknown]
  - Red blood cell count decreased [Unknown]
  - Disease progression [Unknown]
